FAERS Safety Report 10019912 (Version 2)
Quarter: 2014Q2

REPORT INFORMATION
  Report Type: Spontaneous
  Country: US (occurrence: US)
  Receive Date: 20140318
  Receipt Date: 20140618
  Transmission Date: 20141212
  Serious: No
  Sender: FDA-Public Use
  Company Number: US-GALDERMA-US14000486

PATIENT
  Age: 51 Year
  Sex: Female

DRUGS (4)
  1. MIRVASO (BRIMONIDINE) TOPICAL GEL, 0.33% [Suspect]
     Indication: ROSACEA
     Dosage: 0.33%
     Route: 061
     Dates: start: 20140201, end: 20140204
  2. METROGEL  (METRONIDAZOLE) GEL, 1% [Concomitant]
     Indication: ROSACEA
     Dosage: 1%
     Route: 061
     Dates: start: 2004
  3. LOW-OGESTREL [Concomitant]
     Indication: CONTRACEPTION
     Route: 048
     Dates: start: 1994
  4. ADIPEX-P [Concomitant]
     Indication: WEIGHT DECREASED
     Dosage: 37.5 MG
     Dates: start: 2011

REACTIONS (5)
  - Erythema [Recovered/Resolved]
  - Skin warm [Recovered/Resolved]
  - Flushing [Recovered/Resolved]
  - Off label use [Recovered/Resolved]
  - Condition aggravated [Recovered/Resolved]
